FAERS Safety Report 4441058-3 (Version None)
Quarter: 2004Q3

REPORT INFORMATION
  Report Type: 
  Country: None (occurrence: None)
  Receive Date: 20040728
  Receipt Date: 20040401
  Transmission Date: 20050211
  Serious: No
  Sender: FDA-Public Use
  Company Number: USA040463822

PATIENT
  Age: 8 Year
  Sex: Male
  Weight: 55 kg

DRUGS (3)
  1. STRATTERA [Suspect]
     Indication: ATTENTION DEFICIT/HYPERACTIVITY DISORDER
     Dosage: 60 MG DAY
     Dates: start: 20040327
  2. DDAVP [Concomitant]
  3. METADATE CD [Concomitant]

REACTIONS (4)
  - DROOLING [None]
  - GLOSSODYNIA [None]
  - HYPOAESTHESIA ORAL [None]
  - RETCHING [None]
